FAERS Safety Report 9791718 (Version 1)
Quarter: 2014Q1

REPORT INFORMATION
  Report Type: Spontaneous
  Country: CN (occurrence: CN)
  Receive Date: 20140102
  Receipt Date: 20140102
  Transmission Date: 20141002
  Serious: Yes (Other)
  Sender: FDA-Public Use
  Company Number: CN-ACCORD-021053

PATIENT
  Age: 66 Year
  Sex: Male

DRUGS (3)
  1. MYCOPHENOLATE MOFETIL [Suspect]
     Indication: IMMUNOSUPPRESSION
     Dosage: MMF; 500 MG TWICE DAILY
  2. CYCLOSPORIN A [Suspect]
     Indication: IMMUNOSUPPRESSION
     Dosage: CSA; 50 MG TWICE DAILY
  3. PREDNISOLONE [Concomitant]
     Indication: IMMUNOSUPPRESSION
     Dosage: 5 MG TWICE DAILY

REACTIONS (1)
  - Lung neoplasm malignant [Unknown]
